FAERS Safety Report 8778475 (Version 2)
Quarter: 2012Q4

REPORT INFORMATION
  Report Type: 
  Country: JP (occurrence: JP)
  Receive Date: 20120912
  Receipt Date: 20121001
  Transmission Date: 20130627
  Serious: Yes (Hospitalization)
  Sender: FDA-Public Use
  Company Number: JP-GLAXOSMITHKLINE-B0829105A

PATIENT
  Age: 58 Year
  Sex: Male

DRUGS (4)
  1. LAMICTAL [Suspect]
     Indication: BIPOLAR I DISORDER
     Dosage: 125MG Per day
     Route: 048
     Dates: start: 201205, end: 201208
  2. TEGRETOL [Suspect]
     Indication: PRODUCT USED FOR UNKNOWN INDICATION
     Dosage: 100MG Per day
     Route: 048
     Dates: start: 201102, end: 201208
  3. CONTOMIN [Suspect]
     Dosage: 12.5MG Per day
     Route: 048
     Dates: start: 201201, end: 201208
  4. ROZEREM [Concomitant]
     Dosage: 8MG Per day
     Route: 048
     Dates: start: 201201, end: 201208

REACTIONS (3)
  - Neuroleptic malignant syndrome [Recovered/Resolved]
  - Dehydration [Unknown]
  - Nutritional condition abnormal [Unknown]
